FAERS Safety Report 8246379-4 (Version None)
Quarter: 2012Q1

REPORT INFORMATION
  Report Type: 
  Country: None (occurrence: None)
  Receive Date: 20120330
  Receipt Date: 20120322
  Transmission Date: 20120608
  Serious: Yes (Death, Life-Threatening, Hospitalization)
  Sender: FDA-Public Use
  Company Number: CN-ASTELLAS-2012US003183

PATIENT
  Sex: Female
  Weight: 49 kg

DRUGS (1)
  1. ERLOTINIB HYDROCHLORIDE [Suspect]
     Indication: LUNG NEOPLASM MALIGNANT
     Dosage: 150 MG, UID/QD
     Route: 048
     Dates: start: 20111215, end: 20120321

REACTIONS (5)
  - CARDIAC FAILURE ACUTE [None]
  - DYSPNOEA [None]
  - PULMONARY EMBOLISM [None]
  - DEATH [None]
  - UPPER RESPIRATORY TRACT INFECTION [None]
